FAERS Safety Report 10380897 (Version 1)
Quarter: 2014Q3

REPORT INFORMATION
  Report Type: Spontaneous
  Country: US (occurrence: None)
  Receive Date: 20140808
  Receipt Date: 20140808
  Transmission Date: 20150326
  Serious: Yes (Hospitalization)
  Sender: FDA-Public Use
  Company Number: SYM-2014-23773

PATIENT
  Age: 36 Year
  Sex: Female

DRUGS (1)
  1. DILTIAZEM HYDROCHLORIDE (DILTIAZEM HYDROCHLORIDE) [Suspect]
     Active Substance: DILTIAZEM HYDROCHLORIDE
     Indication: CHEST PAIN

REACTIONS (8)
  - Thrombocytopenia [None]
  - Self-medication [None]
  - General physical health deterioration [None]
  - Vasoplegia syndrome [None]
  - Intestinal ischaemia [None]
  - Multi-organ failure [None]
  - Compartment syndrome [None]
  - Gastrointestinal haemorrhage [None]
